FAERS Safety Report 7537528-1 (Version None)
Quarter: 2011Q2

REPORT INFORMATION
  Report Type: 
  Country: None (occurrence: None)
  Receive Date: 20110609
  Receipt Date: 20070330
  Transmission Date: 20111010
  Serious: Yes (Hospitalization)
  Sender: FDA-Public Use
  Company Number: PHHO2007JP03694

PATIENT
  Sex: Female
  Weight: 62 kg

DRUGS (11)
  1. BASEN [Concomitant]
     Indication: DIABETES MELLITUS
  2. AROMASIN [Concomitant]
  3. AMARYL [Concomitant]
     Indication: DIABETES MELLITUS
  4. RHYTHMY [Concomitant]
     Indication: INSOMNIA
  5. CARVEDILOL [Concomitant]
  6. PRAVASTATIN SODIUM [Concomitant]
     Indication: HYPERLIPIDAEMIA
  7. DIOVAN [Suspect]
     Indication: HYPERTENSION
     Dosage: 80 MG, QD
     Route: 048
     Dates: start: 20031007
  8. WARFARIN SODIUM [Concomitant]
     Indication: CARDIAC PACEMAKER INSERTION
  9. ACECOL [Concomitant]
  10. METFORMIN HCL [Concomitant]
     Indication: DIABETES MELLITUS
  11. AMLODIPINE [Concomitant]
     Indication: HYPERTENSION

REACTIONS (1)
  - BREAST CANCER [None]
